FAERS Safety Report 8611675-5 (Version None)
Quarter: 2012Q3

REPORT INFORMATION
  Report Type: 
  Country: None (occurrence: None)
  Receive Date: 20120822
  Receipt Date: 20120816
  Transmission Date: 20120928
  Serious: Yes (Hospitalization, Other)
  Sender: FDA-Public Use
  Company Number: US-ROCHE-1006590

PATIENT
  Sex: Female

DRUGS (7)
  1. VENTOLIN [Concomitant]
  2. PREDNISONE TAB [Concomitant]
  3. PANTOPRAZOLE SODIUM [Concomitant]
  4. CALCIUM [Concomitant]
  5. FOSAMAX [Concomitant]
  6. XOLAIR [Suspect]
     Indication: ASTHMA
     Route: 058
     Dates: start: 20100217
  7. FLUTICASONE PROPIONATE/SALMETEROL [Concomitant]

REACTIONS (8)
  - ASTHENIA [None]
  - BLOOD PRESSURE INCREASED [None]
  - INCREASED UPPER AIRWAY SECRETION [None]
  - PNEUMONIA [None]
  - RHINORRHOEA [None]
  - MALAISE [None]
  - ANXIETY [None]
  - CARDIAC DISORDER [None]
